FAERS Safety Report 12790273 (Version 5)
Quarter: 2019Q2

REPORT INFORMATION
  Report Type: Spontaneous
  Country: US (occurrence: US)
  Receive Date: 20160928
  Receipt Date: 20190524
  Transmission Date: 20190711
  Serious: Yes (Other)
  Sender: FDA-Public Use
  Company Number: US-ASTRAZENECA-2016SF01381

PATIENT
  Age: 704 Month
  Sex: Male
  Weight: 108.9 kg

DRUGS (13)
  1. LISINOPRIL. [Suspect]
     Active Substance: LISINOPRIL
     Indication: HYPERTENSION
     Route: 048
     Dates: start: 2017
  2. BABY ASPIRIN [Concomitant]
     Active Substance: ASPIRIN
     Indication: HYPERTENSION
     Route: 048
  3. TAGAMET [Concomitant]
     Active Substance: CIMETIDINE
     Indication: GASTROOESOPHAGEAL REFLUX DISEASE
     Dosage: UNKNOWN
     Route: 048
  4. JANUVIA [Concomitant]
     Active Substance: SITAGLIPTIN PHOSPHATE
  5. FARXIGA [Suspect]
     Active Substance: DAPAGLIFLOZIN PROPANEDIOL
     Indication: TYPE 2 DIABETES MELLITUS
     Route: 048
  6. GABAPENTIN. [Concomitant]
     Active Substance: GABAPENTIN
     Indication: NEURALGIA
     Dosage: 300MG CAPSULE ONCE DAILY FOR 1ST DAY, 300MG, 2 300 MG CAPS ON THE SECOND DAY, AND , 3 300 MG CAPS...
     Route: 048
  7. PRILOSEC OTC [Suspect]
     Active Substance: OMEPRAZOLE MAGNESIUM
     Indication: GASTROOESOPHAGEAL REFLUX DISEASE
     Dosage: DAILY
     Route: 048
  8. CRESTOR [Suspect]
     Active Substance: ROSUVASTATIN CALCIUM
     Indication: BLOOD CHOLESTEROL INCREASED
     Route: 048
  9. METFORMIN [Suspect]
     Active Substance: METFORMIN HYDROCHLORIDE
     Indication: TYPE 2 DIABETES MELLITUS
     Dosage: NON AZ PRODUCT
     Route: 048
  10. PRAVASTATIN. [Concomitant]
     Active Substance: PRAVASTATIN
  11. GLYBURIDE. [Suspect]
     Active Substance: GLYBURIDE
     Route: 065
  12. BYETTA [Suspect]
     Active Substance: EXENATIDE
     Indication: TYPE 2 DIABETES MELLITUS
     Dosage: 250 UG/ 2.4 ML PEN, 10 MICROGRAMS TWICE A DAY
     Route: 058
     Dates: start: 2016
  13. KLNOPIN [Concomitant]
     Indication: PANIC DISORDER
     Route: 048

REACTIONS (24)
  - Abdominal pain [Not Recovered/Not Resolved]
  - Dyspepsia [Unknown]
  - Limb discomfort [Unknown]
  - Feeling abnormal [Unknown]
  - Gait disturbance [Recovered/Resolved]
  - Arthralgia [Not Recovered/Not Resolved]
  - Diarrhoea [Unknown]
  - Malaise [Unknown]
  - Intentional device misuse [Not Recovered/Not Resolved]
  - Medication error [Unknown]
  - Arthropathy [Unknown]
  - Vascular insufficiency [Unknown]
  - Malaise [Unknown]
  - Blood cholesterol increased [Unknown]
  - Abdominal tenderness [Not Recovered/Not Resolved]
  - Kidney infection [Unknown]
  - Weight fluctuation [Unknown]
  - Paranoia [Not Recovered/Not Resolved]
  - Fall [Recovered/Resolved]
  - Abdominal discomfort [Unknown]
  - Device issue [Unknown]
  - Arthritis [Unknown]
  - Urinary tract disorder [Unknown]
  - Product dose omission [Unknown]

NARRATIVE: CASE EVENT DATE: 2014
